FAERS Safety Report 14681075 (Version 1)
Quarter: 2018Q1

REPORT INFORMATION
  Report Type: Spontaneous
  Country: US (occurrence: US)
  Receive Date: 20180325
  Receipt Date: 20180325
  Transmission Date: 20180509
  Serious: No
  Sender: FDA-Public Use
  Company Number: None

PATIENT
  Age: 68 Year
  Sex: Male

DRUGS (6)
  1. MULTI VITAMINS [Concomitant]
     Active Substance: VITAMINS
  2. METOPROLOL. [Concomitant]
     Active Substance: METOPROLOL
  3. FISH OIL [Concomitant]
     Active Substance: FISH OIL
  4. ZYTIGA [Suspect]
     Active Substance: ABIRATERONE ACETATE
     Indication: METASTASES TO LUNG
     Route: 048
     Dates: start: 20180220
  5. PRAVASTATIN. [Concomitant]
     Active Substance: PRAVASTATIN
  6. PANTOPRAZOLE [Concomitant]
     Active Substance: PANTOPRAZOLE

REACTIONS (1)
  - Fatigue [None]
